FAERS Safety Report 6527740-2 (Version None)
Quarter: 2010Q1

REPORT INFORMATION
  Report Type: 
  Country: None (occurrence: None)
  Receive Date: 20100106
  Receipt Date: 20091224
  Transmission Date: 20100710
  Serious: Yes (Hospitalization)
  Sender: FDA-Public Use
  Company Number: FR-TEVA-219122USA

PATIENT
  Sex: Male

DRUGS (3)
  1. PIMOZIDE TABLETS [Suspect]
     Indication: PSYCHOTIC DISORDER
     Route: 048
  2. LORAZEPAM [Concomitant]
     Indication: ANXIETY
  3. ZOLPIDEM TARTRATE [Concomitant]
     Indication: ANXIETY
     Route: 048

REACTIONS (2)
  - DYSKINESIA [None]
  - DYSPNOEA [None]
